FAERS Safety Report 21925369 (Version 1)
Quarter: 2023Q1

REPORT INFORMATION
  Report Type: Report from Study
  Country: US (occurrence: US)
  Receive Date: 20230130
  Receipt Date: 20230130
  Transmission Date: 20230418
  Serious: Yes (Other)
  Sender: FDA-Public Use
  Company Number: US-SA-SAC20230125000854

PATIENT
  Age: 19 Year
  Sex: Female

DRUGS (1)
  1. BELUMOSUDIL MESYLATE [Suspect]
     Active Substance: BELUMOSUDIL MESYLATE
     Indication: Chronic graft versus host disease
     Dosage: 200MG; BID
     Route: 048
     Dates: start: 20220514

REACTIONS (3)
  - Respiratory failure [Unknown]
  - Pain [Unknown]
  - Drug hypersensitivity [Unknown]
